FAERS Safety Report 8417632-6 (Version None)
Quarter: 2012Q2

REPORT INFORMATION
  Report Type: 
  Country: None (occurrence: None)
  Receive Date: 20120606
  Receipt Date: 20120529
  Transmission Date: 20120825
  Serious: Yes (Life-Threatening, Hospitalization, Other)
  Sender: FDA-Public Use
  Company Number: CA-ROCHE-1017934

PATIENT
  Sex: Female

DRUGS (12)
  1. XOLAIR [Suspect]
     Indication: ASTHMA
     Route: 058
     Dates: start: 20110719
  2. ADVAIR DISKUS 100/50 [Concomitant]
  3. FLONASE [Concomitant]
  4. LUPRON [Concomitant]
  5. LOSEC (CANADA) [Concomitant]
  6. PREDNISONE TAB [Concomitant]
  7. XOLAIR [Suspect]
     Route: 058
     Dates: start: 20120323
  8. XOLAIR [Suspect]
     Dates: start: 20111221
  9. VENTOLIN [Concomitant]
  10. XOLAIR [Suspect]
     Route: 058
     Dates: start: 20111126
  11. FLOVENT [Concomitant]
  12. SINGULAIR [Concomitant]

REACTIONS (12)
  - OEDEMA PERIPHERAL [None]
  - DISCOMFORT [None]
  - DYSPNOEA [None]
  - PULSELESS ELECTRICAL ACTIVITY [None]
  - FATIGUE [None]
  - HYPOXIC-ISCHAEMIC ENCEPHALOPATHY [None]
  - INJECTION SITE MASS [None]
  - INJECTION SITE PAIN [None]
  - WHEEZING [None]
  - ASTHMA [None]
  - STATUS ASTHMATICUS [None]
  - PAIN [None]
